FAERS Safety Report 6286418-3 (Version None)
Quarter: 2009Q3

REPORT INFORMATION
  Report Type: 
  Country: None (occurrence: None)
  Receive Date: 20090727
  Receipt Date: 20090727
  Transmission Date: 20100115
  Serious: Yes (Other)
  Sender: FDA-Public Use
  Company Number: None

PATIENT
  Age: 60 Year
  Sex: Female
  Weight: 94.3482 kg

DRUGS (3)
  1. LEXISCAN [Suspect]
     Indication: CHEST PAIN
     Dosage: 0.4 MG/5 ML PREFILLED SYRINGE 1 DOSE I.V. (INTRAVENOUS)
     Route: 042
     Dates: start: 20090714, end: 20090714
  2. LEXISCAN [Suspect]
     Indication: DYSPNOEA
     Dosage: 0.4 MG/5 ML PREFILLED SYRINGE 1 DOSE I.V. (INTRAVENOUS)
     Route: 042
     Dates: start: 20090714, end: 20090714
  3. LEXISCAN [Suspect]
     Indication: HYPERTENSION
     Dosage: 0.4 MG/5 ML PREFILLED SYRINGE 1 DOSE I.V. (INTRAVENOUS)
     Route: 042
     Dates: start: 20090714, end: 20090714

REACTIONS (1)
  - DIARRHOEA [None]
